FAERS Safety Report 11446349 (Version 1)
Quarter: 2015Q3

REPORT INFORMATION
  Report Type: Spontaneous
  Country: US (occurrence: US)
  Receive Date: 20150831
  Receipt Date: 20150831
  Transmission Date: 20151125
  Serious: No
  Sender: FDA-Public Use
  Company Number: US-ELI_LILLY_AND_COMPANY-US200812000885

PATIENT
  Sex: Female

DRUGS (3)
  1. ETHANOL [Concomitant]
     Active Substance: ALCOHOL
  2. CYMBALTA [Suspect]
     Active Substance: DULOXETINE HYDROCHLORIDE
     Indication: FIBROMYALGIA
     Dosage: 60 MG, UNK
     Dates: start: 200809
  3. WELLBUTRIN [Concomitant]
     Active Substance: BUPROPION HYDROCHLORIDE
     Dosage: 300 MG, UNK
     Dates: start: 200809

REACTIONS (3)
  - Insomnia [Unknown]
  - Agitation [Unknown]
  - Blood alcohol increased [Unknown]

NARRATIVE: CASE EVENT DATE: 2008
